FAERS Safety Report 9132689 (Version 1)
Quarter: 2013Q1

REPORT INFORMATION
  Report Type: Spontaneous
  Country: PT (occurrence: PT)
  Receive Date: 20130301
  Receipt Date: 20130301
  Transmission Date: 20140127
  Serious: Yes (Other)
  Sender: FDA-Public Use
  Company Number: PT-JNJFOC-20130214841

PATIENT
  Age: 62 Year
  Sex: Female

DRUGS (1)
  1. SINUTAB II [Suspect]
     Indication: NASAL DECONGESTION THERAPY
     Dosage: 2 TABLETS IN THE MORNING AND 2 TABLETS AT NIGHT.
     Route: 048
     Dates: start: 20130218, end: 20130220

REACTIONS (1)
  - Swelling face [Recovered/Resolved]
